FAERS Safety Report 14376309 (Version 1)
Quarter: 2018Q1

REPORT INFORMATION
  Report Type: Spontaneous
  Country: US (occurrence: US)
  Receive Date: 20180110
  Receipt Date: 20180110
  Transmission Date: 20180509
  Serious: Yes (Hospitalization)
  Sender: FDA-Public Use
  Company Number: None

PATIENT
  Age: 45 Year
  Sex: Female

DRUGS (25)
  1. BUT/APAP/CAF [Concomitant]
  2. CALCIUM [Concomitant]
     Active Substance: CALCIUM
  3. FLOMAX [Concomitant]
     Active Substance: TAMSULOSIN HYDROCHLORIDE
  4. TOPAMAX [Concomitant]
     Active Substance: TOPIRAMATE
  5. DYMISTA [Concomitant]
     Active Substance: AZELASTINE HYDROCHLORIDE\FLUTICASONE PROPIONATE
  6. VITAMIN D3 [Concomitant]
     Active Substance: CHOLECALCIFEROL
  7. CELEBREX [Concomitant]
     Active Substance: CELECOXIB
  8. MYRBETRIQ [Concomitant]
     Active Substance: MIRABEGRON
  9. OMEPRAZOLE. [Concomitant]
     Active Substance: OMEPRAZOLE
  10. TOPIRAMATE. [Concomitant]
     Active Substance: TOPIRAMATE
  11. TREZIX [Concomitant]
     Active Substance: ACETAMINOPHEN\CAFFEINE\DIHYDROCODEINE BITARTRATE
  12. COSENTYX [Suspect]
     Active Substance: SECUKINUMAB
     Indication: ANKYLOSING SPONDYLITIS
     Route: 058
     Dates: start: 20170802
  13. SYNTHROID [Concomitant]
     Active Substance: LEVOTHYROXINE SODIUM
  14. TAMSULOSIN [Concomitant]
     Active Substance: TAMSULOSIN
  15. AMBIEN [Concomitant]
     Active Substance: ZOLPIDEM TARTRATE
  16. ESZOPICLONE. [Concomitant]
     Active Substance: ESZOPICLONE
  17. LEVOTHYROXIN [Concomitant]
     Active Substance: LEVOTHYROXINE
  18. MONTELUKAST [Concomitant]
     Active Substance: MONTELUKAST SODIUM
  19. BACLOFEN. [Concomitant]
     Active Substance: BACLOFEN
  20. CYMBALTA [Concomitant]
     Active Substance: DULOXETINE HYDROCHLORIDE
  21. ZOLPIDEM [Concomitant]
     Active Substance: ZOLPIDEM\ZOLPIDEM TARTRATE
  22. CELECOXIB. [Concomitant]
     Active Substance: CELECOXIB
  23. NEURONTIN [Concomitant]
     Active Substance: GABAPENTIN
  24. UROGESIC [Concomitant]
  25. GABAPENTIN. [Concomitant]
     Active Substance: GABAPENTIN

REACTIONS (6)
  - Condition aggravated [None]
  - Sinusitis [None]
  - Shoulder operation [None]
  - Incorrect dose administered [None]
  - Joint stiffness [None]
  - Fatigue [None]
